FAERS Safety Report 8051616-5 (Version None)
Quarter: 2012Q1

REPORT INFORMATION
  Report Type: 
  Country: None (occurrence: None)
  Receive Date: 20120118
  Receipt Date: 20120110
  Transmission Date: 20120608
  Serious: Yes (Hospitalization)
  Sender: FDA-Public Use
  Company Number: US-BIOGENIDEC-2012BI001085

PATIENT
  Age: 62 Year
  Sex: Female

DRUGS (1)
  1. AVONEX [Suspect]
     Indication: MULTIPLE SCLEROSIS
     Route: 030
     Dates: start: 20001218

REACTIONS (7)
  - STRESS [None]
  - ARTHRALGIA [None]
  - KNEE ARTHROPLASTY [None]
  - INFECTION [None]
  - ANXIETY [None]
  - CONFUSIONAL STATE [None]
  - GAIT DISTURBANCE [None]
